FAERS Safety Report 21193464 (Version 2)
Quarter: 2022Q3

REPORT INFORMATION
  Report Type: Spontaneous
  Country: US (occurrence: US)
  Receive Date: 20220810
  Receipt Date: 20220913
  Transmission Date: 20221026
  Serious: Yes (Other)
  Sender: FDA-Public Use
  Company Number: US-SANOFI-01222403

PATIENT
  Age: 89 Year
  Sex: Female

DRUGS (1)
  1. LANTUS SOLOSTAR [Suspect]
     Active Substance: INSULIN GLARGINE
     Indication: Type 2 diabetes mellitus
     Dosage: 60 IU, QD

REACTIONS (4)
  - Thrombosis [Unknown]
  - COVID-19 [Unknown]
  - Blood pressure abnormal [Unknown]
  - Limb discomfort [Recovering/Resolving]
